FAERS Safety Report 9422419 (Version 1)
Quarter: 2013Q3

REPORT INFORMATION
  Report Type: Spontaneous
  Country: US (occurrence: US)
  Receive Date: 20130724
  Receipt Date: 20130724
  Transmission Date: 20140515
  Serious: Yes (Death)
  Sender: FDA-Public Use
  Company Number: AUR-APL-2013-05973

PATIENT
  Age: 58 Year
  Sex: Female

DRUGS (6)
  1. FLUOXETINE (FLUOXETINE) [Suspect]
     Indication: PRODUCT USED FOR UNKNOWN INDICATION
  2. VENLAFAXINE (VENLAFAXINE) [Suspect]
     Indication: PRODUCT USED FOR UNKNOWN INDICATION
  3. HYDROXYZINE PAMOATE [Suspect]
     Indication: PRODUCT USED FOR UNKNOWN INDICATION
     Dosage: 13 (50 MG)  TABLESTS WERE TAKEN OVER 3 DAYS,
  4. PROPOXYPHENE (DEXTROPROPOXYPHENE) [Suspect]
     Indication: PRODUCT USED FOR UNKNOWN INDICATION
     Dosage: 13 (50 MG) TABLESTS WERE TAKEN OVER 3 DAYS,
  5. ACETAMINOPHEN (PARACETAMOL) [Concomitant]
  6. CLONAZEPAM (CLONAZEPAM) (CLONAZEPAM) [Concomitant]

REACTIONS (7)
  - Unresponsive to stimuli [None]
  - Hypersomnia [None]
  - Pneumonia aspiration [None]
  - Bronchopneumonia [None]
  - Toxicity to various agents [None]
  - Completed suicide [None]
  - Intentional overdose [None]
